FAERS Safety Report 9819601 (Version 1)
Quarter: 2014Q1

REPORT INFORMATION
  Report Type: Spontaneous
  Country: DK (occurrence: GB)
  Receive Date: 20140115
  Receipt Date: 20140115
  Transmission Date: 20141002
  Serious: Yes (Hospitalization, Other)
  Sender: FDA-Public Use
  Company Number: GB-FRI-1000052808

PATIENT
  Sex: Female

DRUGS (4)
  1. CITALOPRAM [Suspect]
     Dosage: 20 MG
     Route: 048
     Dates: start: 201302
  2. CITALOPRAM [Suspect]
     Dosage: 30 MG
     Route: 048
  3. CITALOPRAM [Suspect]
     Dosage: 40 MG
     Route: 048
  4. CITALOPRAM [Suspect]
     Dosage: 20 MG
     Route: 048

REACTIONS (2)
  - Intracranial aneurysm [Unknown]
  - Hypoaesthesia [Recovered/Resolved]
